FAERS Safety Report 25253669 (Version 1)
Quarter: 2025Q2

REPORT INFORMATION
  Report Type: Spontaneous
  Country: BR (occurrence: BR)
  Receive Date: 20250430
  Receipt Date: 20250430
  Transmission Date: 20250717
  Serious: Yes (Other)
  Sender: AMGEN
  Company Number: BR-AMGEN-BRASP2025076061

PATIENT
  Sex: Female

DRUGS (3)
  1. PROLIA [Suspect]
     Active Substance: DENOSUMAB
     Indication: Product used for unknown indication
     Route: 065
  2. PROLIA [Suspect]
     Active Substance: DENOSUMAB
  3. EVENITY [Suspect]
     Active Substance: ROMOSOZUMAB-AQQG
     Indication: Product used for unknown indication
     Route: 065

REACTIONS (14)
  - Skin cancer [Unknown]
  - Therapy non-responder [Unknown]
  - Bone loss [Recovered/Resolved]
  - Rhinitis [Unknown]
  - Malaise [Unknown]
  - Dyspnoea [Unknown]
  - Dry eye [Unknown]
  - Dry throat [Unknown]
  - Nasal discomfort [Unknown]
  - Sleep disorder [Unknown]
  - Skin disorder [Unknown]
  - Rash macular [Unknown]
  - Glucose tolerance impaired [Unknown]
  - Ocular hyperaemia [Unknown]

NARRATIVE: CASE EVENT DATE: 20250325
